FAERS Safety Report 12714301 (Version 1)
Quarter: 2016Q3

REPORT INFORMATION
  Report Type: Spontaneous
  Country: US (occurrence: US)
  Receive Date: 20160905
  Receipt Date: 20160905
  Transmission Date: 20161109
  Serious: No
  Sender: FDA-Public Use
  Company Number: US-PFIZER INC-2016415454

PATIENT
  Age: 31 Year
  Sex: Female

DRUGS (2)
  1. PROVIGIL [Interacting]
     Active Substance: MODAFINIL
     Dosage: UNK
  2. ZOLOFT [Suspect]
     Active Substance: SERTRALINE HYDROCHLORIDE
     Dosage: UNK

REACTIONS (2)
  - Drug interaction [Unknown]
  - Somnambulism [Unknown]
